FAERS Safety Report 6171115-5 (Version None)
Quarter: 2009Q2

REPORT INFORMATION
  Report Type: 
  Country: None (occurrence: None)
  Receive Date: 20090429
  Receipt Date: 20090420
  Transmission Date: 20091009
  Serious: Yes (Other)
  Sender: FDA-Public Use
  Company Number: PHEH2009US03924

PATIENT
  Sex: Female

DRUGS (9)
  1. RECLAST [Suspect]
     Dosage: UNK
     Dates: start: 20090406
  2. CALCIUM [Concomitant]
  3. VITAMIN D [Concomitant]
  4. NEXIUM [Concomitant]
  5. VYTORIN [Concomitant]
  6. LEXAPRO [Concomitant]
  7. AVALIDE [Concomitant]
  8. METOPROLOL [Concomitant]
  9. MELATONIN [Concomitant]

REACTIONS (3)
  - CELLULITIS [None]
  - OEDEMA PERIPHERAL [None]
  - PAIN IN EXTREMITY [None]
